FAERS Safety Report 6894139-9 (Version None)
Quarter: 2010Q3

REPORT INFORMATION
  Report Type: 
  Country: None (occurrence: None)
  Receive Date: 20100708
  Receipt Date: 20091201
  Transmission Date: 20110219
  Serious: Yes (Other)
  Sender: FDA-Public Use
  Company Number: 2009295044

PATIENT
  Age: 52 Year
  Sex: Male
  Weight: 117.9 kg

DRUGS (2)
  1. CHANTIX [Suspect]
     Indication: SMOKING CESSATION THERAPY
     Dates: end: 20090801
  2. LEXAPRO [Concomitant]

REACTIONS (7)
  - ABNORMAL DREAMS [None]
  - FLATULENCE [None]
  - HALLUCINATION [None]
  - LIBIDO INCREASED [None]
  - PARANOIA [None]
  - SEMEN VOLUME DECREASED [None]
  - WEIGHT INCREASED [None]
